FAERS Safety Report 20884836 (Version 1)
Quarter: 2022Q2

REPORT INFORMATION
  Report Type: Report from Study
  Country: QA (occurrence: QA)
  Receive Date: 20220527
  Receipt Date: 20220527
  Transmission Date: 20220720
  Serious: Yes (Other)
  Sender: FDA-Public Use
  Company Number: QA-JNJFOC-20220334024

PATIENT

DRUGS (6)
  1. COBICISTAT\DARUNAVIR ETHANOLATE [Interacting]
     Active Substance: COBICISTAT\DARUNAVIR ETHANOLATE
     Indication: COVID-19 pneumonia
     Dosage: 800MG DARUNAVIR/ 150MG COBICISTAT
     Route: 048
  2. LOPINAVIR\RITONAVIR [Concomitant]
     Active Substance: LOPINAVIR\RITONAVIR
     Indication: COVID-19 pneumonia
     Dosage: 200MG LOPINAVIR/ 50MG RITONAVIR?2 TABLETS ORALLY TWICE DAILY
     Route: 048
  3. OSELTAMIVIR [Concomitant]
     Active Substance: OSELTAMIVIR
     Indication: Product used for unknown indication
     Route: 065
  4. CHLOROQUINE [Concomitant]
     Active Substance: CHLOROQUINE
     Indication: Product used for unknown indication
     Route: 065
  5. AZITHROMYCIN [Concomitant]
     Active Substance: AZITHROMYCIN
     Indication: Product used for unknown indication
     Route: 065
  6. RIBAVIRIN [Concomitant]
     Active Substance: RIBAVIRIN
     Indication: Product used for unknown indication

REACTIONS (6)
  - Renal impairment [Unknown]
  - Electrocardiogram QT prolonged [Unknown]
  - Transaminases increased [Unknown]
  - Drug interaction [Unknown]
  - Off label use [Unknown]
  - Product use in unapproved indication [Unknown]
